FAERS Safety Report 8838761 (Version 2)
Quarter: 2014Q2

REPORT INFORMATION
  Report Type: Spontaneous
  Country: US (occurrence: US)
  Receive Date: 20121012
  Receipt Date: 20140616
  Transmission Date: 20141212
  Serious: Yes (Hospitalization)
  Sender: FDA-Public Use
  Company Number: US-009507513-2011SP026444

PATIENT
  Sex: Female
  Weight: 69.4 kg

DRUGS (2)
  1. NUVARING [Suspect]
     Indication: CONTRACEPTION
     Dates: start: 200811, end: 20090616
  2. NUVARING [Suspect]
     Indication: MENSTRUAL CYCLE MANAGEMENT

REACTIONS (5)
  - Transverse sinus thrombosis [Recovered/Resolved]
  - Influenza like illness [Recovering/Resolving]
  - Oral herpes [Unknown]
  - Asthenia [Unknown]
  - Menorrhagia [Unknown]
